FAERS Safety Report 21812604 (Version 2)
Quarter: 2023Q1

REPORT INFORMATION
  Report Type: Spontaneous
  Country: IN (occurrence: IN)
  Receive Date: 20230103
  Receipt Date: 20230127
  Transmission Date: 20230418
  Serious: Yes (Other)
  Sender: FDA-Public Use
  Company Number: IN-PFIZER INC-PV202200076078

PATIENT
  Age: 69 Year
  Sex: Female

DRUGS (3)
  1. PALBOCICLIB [Suspect]
     Active Substance: PALBOCICLIB
     Indication: Breast cancer
     Dosage: 125 MG, 1X/DAY
     Route: 048
     Dates: start: 20220104
  2. CALCIUM CARBONATE\CHOLECALCIFEROL [Concomitant]
     Active Substance: CALCIUM CARBONATE\CHOLECALCIFEROL
     Dosage: UNK, 2X/DAY (UNK, 2X/DAY, AFTER BREAKFAST + AFTER DINNER)
  3. FULVESTRANT [Concomitant]
     Active Substance: FULVESTRANT
     Dosage: 250 MG, MONTHLY (IN EACH BUTTOCK ONCE A MONTH X TO CONTINUE)
     Route: 030

REACTIONS (8)
  - Acquired diaphragmatic eventration [Unknown]
  - Periorbital swelling [Unknown]
  - Hepatic steatosis [Unknown]
  - Uterine leiomyoma [Unknown]
  - Full blood count abnormal [Unknown]
  - Blood glucose increased [Unknown]
  - Hyperglycaemia [Unknown]
  - Glycosylated haemoglobin increased [Unknown]

NARRATIVE: CASE EVENT DATE: 20220101
